FAERS Safety Report 5919889-X (Version None)
Quarter: 2008Q4

REPORT INFORMATION
  Report Type: 
  Country: None (occurrence: None)
  Receive Date: 20081015
  Receipt Date: 20081003
  Transmission Date: 20090506
  Serious: Yes (Death, Hospitalization)
  Sender: FDA-Public Use
  Company Number: GB-AMGEN-US312469

PATIENT
  Age: 21 Year
  Sex: Female

DRUGS (12)
  1. ENBREL [Suspect]
     Indication: PUSTULAR PSORIASIS
     Route: 058
  2. ENBREL [Suspect]
     Indication: PSORIATIC ARTHROPATHY
  3. METHOTREXATE [Suspect]
     Indication: PUSTULAR PSORIASIS
     Route: 058
  4. METHOTREXATE [Suspect]
     Route: 058
  5. CYCLOSPORINE [Suspect]
     Indication: PUSTULAR PSORIASIS
  6. CYCLOSPORINE [Suspect]
  7. CYCLOSPORINE [Suspect]
  8. CYCLOSPORINE [Suspect]
  9. PREDNISOLONE [Suspect]
     Indication: PUSTULAR PSORIASIS
     Dosage: ORAL STEROIDS WERE REDUCED TO 7.5 MG DAILY OVER AN 8-MONTH PERIOD
     Route: 048
  10. VANCOMYCIN HYDROCHLORIDE [Concomitant]
     Dosage: NOT SPECIFIED
     Route: 042
  11. ACITRETIN [Concomitant]
  12. RIFAMPICIN [Concomitant]
     Dosage: NOT SPECIFIED
     Route: 042

REACTIONS (12)
  - ABDOMINAL PAIN [None]
  - ARTHRITIS BACTERIAL [None]
  - BLOOD CULTURE POSITIVE [None]
  - DISSEMINATED INTRAVASCULAR COAGULATION [None]
  - HAEMOGLOBIN DECREASED [None]
  - HYPOALBUMINAEMIA [None]
  - JOINT EFFUSION [None]
  - NAUSEA [None]
  - ORGANISING PNEUMONIA [None]
  - PURULENCE [None]
  - RECTAL HAEMORRHAGE [None]
  - TUBERCULOSIS [None]
